FAERS Safety Report 18896793 (Version 5)
Quarter: 2021Q3

REPORT INFORMATION
  Report Type: Spontaneous
  Country: JP (occurrence: JP)
  Receive Date: 20210216
  Receipt Date: 20210903
  Transmission Date: 20211014
  Serious: Yes (Other)
  Sender: FDA-Public Use
  Company Number: JP-GLAXOSMITHKLINE-JP2021JPN038507

PATIENT
  Age: 19 Year
  Sex: Female
  Weight: 54.2 kg

DRUGS (5)
  1. CELLCEPT [Concomitant]
     Active Substance: MYCOPHENOLATE MOFETIL\MYCOPHENOLATE MOFETIL HYDROCHLORIDE
     Indication: SYSTEMIC LUPUS ERYTHEMATOSUS
     Dosage: 500?2000MG
     Route: 048
     Dates: start: 202009
  2. PLAQUENIL [Concomitant]
     Active Substance: HYDROXYCHLOROQUINE SULFATE
     Indication: SYSTEMIC LUPUS ERYTHEMATOSUS
     Dosage: 300 MG
     Route: 048
     Dates: start: 201707
  3. PREDONINE [Concomitant]
     Active Substance: PREDNISOLONE
     Indication: SYSTEMIC LUPUS ERYTHEMATOSUS
     Dosage: 20 MG
     Route: 048
  4. PROGRAF [Concomitant]
     Active Substance: TACROLIMUS
     Indication: SYSTEMIC LUPUS ERYTHEMATOSUS
     Dosage: 3 MG
     Route: 048
     Dates: start: 201906
  5. BENLYSTA [Suspect]
     Active Substance: BELIMUMAB
     Indication: SYSTEMIC LUPUS ERYTHEMATOSUS
     Dosage: 200 MG, WE
     Route: 058
     Dates: start: 20190301, end: 20200327

REACTIONS (6)
  - Drug ineffective [Unknown]
  - Proteinuria [Recovered/Resolved]
  - Therapy cessation [Unknown]
  - Haematuria [Recovered/Resolved]
  - Injection site pain [Recovering/Resolving]
  - Lupus nephritis [Recovered/Resolved]

NARRATIVE: CASE EVENT DATE: 20190301
